FAERS Safety Report 6570742-0 (Version None)
Quarter: 2010Q1

REPORT INFORMATION
  Report Type: 
  Country: None (occurrence: None)
  Receive Date: 20100204
  Receipt Date: 20100128
  Transmission Date: 20100710
  Serious: Yes (Hospitalization)
  Sender: FDA-Public Use
  Company Number: B0631124A

PATIENT
  Sex: Female
  Weight: 78 kg

DRUGS (4)
  1. ARIXTRA [Suspect]
     Indication: PROPHYLAXIS
     Dosage: 2.5MG PER DAY
     Route: 058
     Dates: start: 20090814, end: 20090817
  2. INFLAMAC [Concomitant]
     Dosage: 150MG PER DAY
     Route: 048
     Dates: start: 20090814, end: 20090909
  3. DAFALGAN [Concomitant]
     Dosage: 4G PER DAY
     Route: 048
     Dates: start: 20090814, end: 20090909
  4. NEXIUM [Concomitant]
     Dosage: 40MG PER DAY
     Route: 048
     Dates: start: 20090814, end: 20090909

REACTIONS (4)
  - HAEMATOMA [None]
  - HAEMORRHAGIC ANAEMIA [None]
  - JOINT SWELLING [None]
  - MOBILITY DECREASED [None]
